FAERS Safety Report 21684514 (Version 1)
Quarter: 2022Q4

REPORT INFORMATION
  Report Type: Spontaneous
  Country: BR (occurrence: BR)
  Receive Date: 20221205
  Receipt Date: 20221205
  Transmission Date: 20230113
  Serious: Yes (Hospitalization)
  Sender: FDA-Public Use
  Company Number: BR-NAPPMUNDI-GBR-2022-0103494

PATIENT
  Age: 83 Year
  Sex: Male

DRUGS (1)
  1. BUPRENORPHINE [Suspect]
     Active Substance: BUPRENORPHINE
     Indication: Fracture pain
     Dosage: UNK
     Route: 062
     Dates: start: 20221009

REACTIONS (4)
  - Micturition urgency [Recovering/Resolving]
  - Defaecation urgency [Recovering/Resolving]
  - Amnesia [Recovering/Resolving]
  - Abdominal discomfort [Recovering/Resolving]

NARRATIVE: CASE EVENT DATE: 20221009
